FAERS Safety Report 7832347-0 (Version None)
Quarter: 2011Q4

REPORT INFORMATION
  Report Type: 
  Country: None (occurrence: None)
  Receive Date: 20111022
  Receipt Date: 20111010
  Transmission Date: 20120403
  Serious: Yes (Hospitalization)
  Sender: FDA-Public Use
  Company Number: US-BAYER-201031265NA

PATIENT
  Age: 27 Year
  Sex: Female
  Weight: 90.703 kg

DRUGS (13)
  1. CYCLOBENZAPRINE [Concomitant]
     Dosage: 10 MG, UNK
     Route: 048
  2. DEPO-MEDROL [Concomitant]
     Dosage: 80 MG, UNK
     Route: 030
  3. YAZ [Suspect]
     Indication: MENSTRUATION IRREGULAR
  4. DICLOFENAC POTASSIUM [Concomitant]
     Dosage: 75 MG, UNK
     Route: 048
  5. HYDROCODONE BITARTRATE AND ACETAMINOPHEN [Concomitant]
     Dosage: 500 MG, PRN
     Route: 048
  6. AMITRIPTYLINE HCL [Concomitant]
     Dosage: 50 MG, UNK
     Route: 048
  7. TORADOL [Concomitant]
     Dosage: 60 MG, UNK
     Route: 030
  8. PROPOXYPHENE NAPSYLATE W/ ACETAMINOPHEN [Concomitant]
     Dosage: UNK
     Dates: start: 20060101, end: 20091201
  9. TIZANIDINE HCL [Concomitant]
     Dosage: 4 MG, UNK
     Route: 048
     Dates: start: 20080101
  10. TOPIRAMATE [Concomitant]
     Dosage: 50 MG, UNK
     Route: 048
     Dates: start: 20090401
  11. YAZ [Suspect]
     Indication: ABDOMINAL PAIN LOWER
     Dosage: UNK
     Route: 048
     Dates: start: 20080701, end: 20091214
  12. YAZ [Suspect]
     Indication: PREMENSTRUAL SYNDROME
  13. ALBUTEROL INHALER [Concomitant]
     Dosage: UNK
     Route: 055
     Dates: start: 20040101

REACTIONS (5)
  - PULMONARY EMBOLISM [None]
  - PAIN [None]
  - SINUS TACHYCARDIA [None]
  - PULMONARY INFARCTION [None]
  - CHEST PAIN [None]
